FAERS Safety Report 5305569-0 (Version None)
Quarter: 2007Q2

REPORT INFORMATION
  Report Type: 
  Country: None (occurrence: None)
  Receive Date: 20070424
  Receipt Date: 20070416
  Transmission Date: 20071010
  Serious: Yes (Hospitalization)
  Sender: FDA-Public Use
  Company Number: FR-AVENTIS-200711335FR

PATIENT
  Age: 47 Year
  Sex: Female

DRUGS (6)
  1. ARAVA [Suspect]
     Indication: DRUG USE FOR UNKNOWN INDICATION
     Route: 048
     Dates: start: 20060815
  2. TANAKAN                            /01003103/ [Concomitant]
     Route: 048
  3. L-THYROXINE ROCHE [Concomitant]
     Route: 048
  4. XANAX [Concomitant]
     Route: 048
  5. FLUVOXAMINE MALEATE [Concomitant]
     Route: 048
  6. OMEPRAZOLE [Concomitant]
     Route: 048

REACTIONS (7)
  - ALOPECIA [None]
  - ASTHENIA [None]
  - HEPATOCELLULAR DAMAGE [None]
  - LEUKOPENIA [None]
  - LYMPHOPENIA [None]
  - NEUTROPENIA [None]
  - WEIGHT DECREASED [None]
